FAERS Safety Report 7777662-4 (Version None)
Quarter: 2011Q3

REPORT INFORMATION
  Report Type: 
  Country: None (occurrence: None)
  Receive Date: 20110922
  Receipt Date: 20110909
  Transmission Date: 20111222
  Serious: Yes (Hospitalization)
  Sender: FDA-Public Use
  Company Number: 2011GW000483

PATIENT
  Sex: Male

DRUGS (1)
  1. NITROGLYCERIN (GLYCERYL TRINITRATE) (0.4 MG) [Suspect]
     Indication: PRODUCT USED FOR UNKNOWN INDICATION
     Dosage: 0.4 MG; TDER
     Route: 062

REACTIONS (3)
  - FALL [None]
  - LOSS OF CONSCIOUSNESS [None]
  - DIZZINESS [None]
